FAERS Safety Report 10997509 (Version 1)
Quarter: 2015Q2

REPORT INFORMATION
  Report Type: Spontaneous
  Country: US (occurrence: US)
  Receive Date: 20150408
  Receipt Date: 20150408
  Transmission Date: 20150821
  Serious: Yes (Death, Hospitalization)
  Sender: FDA-Public Use
  Company Number: US-PFIZER INC-2015117170

PATIENT
  Age: 72 Year
  Sex: Male

DRUGS (1)
  1. AMIODARONE HCL [Suspect]
     Active Substance: AMIODARONE HYDROCHLORIDE
     Indication: ATRIAL FIBRILLATION
     Dosage: 200 MG, UNK
     Route: 048

REACTIONS (19)
  - Lung infiltration [Unknown]
  - Haemoptysis [Unknown]
  - Irritability [Unknown]
  - Wheezing [Unknown]
  - Cough [Unknown]
  - Pulmonary toxicity [Fatal]
  - Asthenia [Unknown]
  - Restlessness [Unknown]
  - Depression [Unknown]
  - Nervousness [Unknown]
  - Disturbance in attention [Unknown]
  - Product use issue [Fatal]
  - Dyspnoea [Unknown]
  - Productive cough [Unknown]
  - Fatigue [Unknown]
  - Pallor [Unknown]
  - Cachexia [Unknown]
  - Lung disorder [Unknown]
  - Impaired healing [Unknown]

NARRATIVE: CASE EVENT DATE: 2012
